FAERS Safety Report 12525921 (Version 1)
Quarter: 2016Q3

REPORT INFORMATION
  Report Type: Spontaneous
  Country: HK (occurrence: HK)
  Receive Date: 20160705
  Receipt Date: 20160705
  Transmission Date: 20161109
  Serious: Yes (Other)
  Sender: FDA-Public Use
  Company Number: HK-ALKEM-001714

PATIENT
  Age: 66 Year
  Sex: Female

DRUGS (2)
  1. OLANZAPINE. [Suspect]
     Active Substance: OLANZAPINE
     Indication: SCHIZOPHRENIA
     Dates: start: 201305
  2. CHLORPROMAZINE. [Suspect]
     Active Substance: CHLORPROMAZINE
     Indication: SCHIZOPHRENIA
     Dates: start: 2000, end: 201305

REACTIONS (4)
  - Ocular toxicity [Unknown]
  - Lenticular pigmentation [Unknown]
  - Visual acuity reduced [Unknown]
  - Condition aggravated [Unknown]

NARRATIVE: CASE EVENT DATE: 201510
